FAERS Safety Report 5573269-8 (Version None)
Quarter: 2007Q4

REPORT INFORMATION
  Report Type: 
  Country: None (occurrence: None)
  Receive Date: 20071224
  Receipt Date: 20071218
  Transmission Date: 20080405
  Serious: Yes (Hospitalization)
  Sender: FDA-Public Use
  Company Number: PHBS2007BR20932

PATIENT
  Age: 79 Year
  Sex: Female
  Weight: 84 kg

DRUGS (9)
  1. STARLIX [Suspect]
     Indication: DIABETES MELLITUS
     Dosage: UNK, QID
     Route: 048
     Dates: start: 20000101, end: 20070901
  2. LOSARTAN POTASSIUM [Concomitant]
     Indication: HYPERTENSION
     Dosage: 100 MG, QD
     Route: 048
     Dates: start: 20010101
  3. AMLODIPINE [Concomitant]
     Indication: HYPERTENSION
     Dosage: 10 MG, QD
     Route: 048
     Dates: start: 20010101
  4. TICLID [Concomitant]
     Indication: HYPERTENSION
     Dosage: 25 MG, QID
     Route: 048
     Dates: start: 20010101
  5. CRESTOR [Concomitant]
     Indication: DIABETES MELLITUS
     Dosage: 10 MG, QD
     Route: 048
     Dates: start: 20010101
  6. METFORMIN HCL [Concomitant]
     Indication: HYPERTENSION
     Dosage: 850 MG, TID
     Route: 048
     Dates: start: 20010101
  7. ATENOLOL [Concomitant]
     Indication: HYPERTENSION
     Dosage: 100 MG, QD
     Route: 048
     Dates: start: 20010101
  8. BENERVA [Concomitant]
     Dosage: UNK, Q12H
     Route: 048
     Dates: start: 20010101
  9. TRILEPTAL [Suspect]
     Dosage: UNK, UNK

REACTIONS (1)
  - CATHETER PLACEMENT [None]
